FAERS Safety Report 13929716 (Version 1)
Quarter: 2017Q3

REPORT INFORMATION
  Report Type: Spontaneous
  Country: ZA (occurrence: ZA)
  Receive Date: 20170901
  Receipt Date: 20170901
  Transmission Date: 20171127
  Serious: Yes (Hospitalization)
  Sender: FDA-Public Use
  Company Number: PHHY2017ZA126630

PATIENT
  Sex: Female

DRUGS (1)
  1. RANIHEXAL [Suspect]
     Active Substance: RANITIDINE HYDROCHLORIDE
     Indication: ULCER
     Dosage: 150 MG, UNK
     Route: 048

REACTIONS (2)
  - Lupus cystitis [Unknown]
  - Cystitis [Unknown]
